FAERS Safety Report 5966116-3 (Version None)
Quarter: 2008Q4

REPORT INFORMATION
  Report Type: 
  Country: None (occurrence: None)
  Receive Date: 20081119
  Receipt Date: 20080807
  Transmission Date: 20090506
  Serious: No
  Sender: FDA-Public Use
  Company Number: WAES 0808USA01335

PATIENT
  Sex: Male

DRUGS (2)
  1. JANUVIA [Suspect]
     Indication: DIABETES MELLITUS
     Dosage: UNK/UNK/PO
     Route: 048
  2. THERAPY UNSPECIFIED [Concomitant]

REACTIONS (1)
  - ANGIOEDEMA [None]
